FAERS Safety Report 6572213-4 (Version None)
Quarter: 2010Q1

REPORT INFORMATION
  Report Type: 
  Country: None (occurrence: None)
  Receive Date: 20100205
  Receipt Date: 20100125
  Transmission Date: 20100710
  Serious: Yes (Hospitalization)
  Sender: FDA-Public Use
  Company Number: FR-WATSON-2010-01021

PATIENT
  Age: 46 Year
  Sex: Female

DRUGS (4)
  1. LOXITANE (WATSON LABORATORIES) [Suspect]
     Indication: PSYCHOTIC DISORDER
     Dosage: UNK
  2. CHLORPROMAZINE HCL [Suspect]
     Indication: PSYCHOTIC DISORDER
     Dosage: UNK
  3. TRIHEXYPHENIDYL HYDROCHLORIDE (WATSON LABORATORIES) [Suspect]
     Indication: PSYCHOTIC DISORDER
     Dosage: UNK
  4. TROPATEPINE [Suspect]
     Indication: PSYCHOTIC DISORDER
     Dosage: UNK

REACTIONS (4)
  - ABDOMINAL COMPARTMENT SYNDROME [None]
  - ABDOMINAL DISTENSION [None]
  - RENAL FAILURE ACUTE [None]
  - SHOCK [None]
